FAERS Safety Report 8622016 (Version 2)
Quarter: 2016Q1

REPORT INFORMATION
  Report Type: Spontaneous
  Country: US (occurrence: US)
  Receive Date: 20120619
  Receipt Date: 20160331
  Transmission Date: 20160526
  Serious: No
  Sender: FDA-Public Use
  Company Number: US-ASTRAZENECA-2012SE39886

PATIENT
  Age: 50 Year
  Sex: Female

DRUGS (1)
  1. SYMBICORT [Suspect]
     Active Substance: BUDESONIDE\FORMOTEROL FUMARATE DIHYDRATE
     Dosage: 160/4.5 UG, TWO TIMES A DAY, 1 PUFF IN THE MORNING AND 1 PUFF AT NIGHT
     Route: 055

REACTIONS (3)
  - Dyspnoea [Unknown]
  - Drug dose omission [Unknown]
  - Intentional product misuse [Unknown]
